FAERS Safety Report 9885468 (Version 1)
Quarter: 2014Q1

REPORT INFORMATION
  Report Type: Spontaneous
  Country: FR (occurrence: FR)
  Receive Date: 20140210
  Receipt Date: 20140210
  Transmission Date: 20141002
  Serious: Yes (Hospitalization, Other)
  Sender: FDA-Public Use
  Company Number: FR-PFIZER INC-2014030278

PATIENT
  Age: 81 Year
  Sex: Female

DRUGS (8)
  1. XANAX [Suspect]
     Dosage: 0.25 MG, 1X/DAY
     Route: 048
     Dates: end: 20131217
  2. IMOVANE [Suspect]
     Dosage: 7.5 MG, 1X/DAY
     Route: 048
     Dates: end: 20131217
  3. TOPALGIC [Suspect]
     Dosage: 150 MG, 2X/DAY
     Route: 048
     Dates: end: 20131217
  4. TRIATEC [Concomitant]
     Dosage: 5 MG, 1X/DAY
     Route: 048
     Dates: end: 201312
  5. RYTHMOL ^BIOSEDRA^ [Concomitant]
     Dosage: 300 MG, 2X/DAY
     Route: 048
     Dates: end: 201312
  6. PIASCLEDINE [Concomitant]
     Dosage: 300 MG, 1X/DAY
     Route: 048
     Dates: end: 201312
  7. LAROXYL [Concomitant]
     Dosage: 25 MG, 1X/DAY
     Route: 048
     Dates: end: 201312
  8. CALCIPARIN [Concomitant]
     Dosage: 6500 IU, 2X/DAY
     Route: 058
     Dates: start: 201308

REACTIONS (10)
  - Escherichia infection [Unknown]
  - Metastasis [Unknown]
  - Spinal fracture [Unknown]
  - Confusional state [Recovered/Resolved]
  - Panic attack [Recovered/Resolved]
  - Agitation [Recovered/Resolved]
  - Dysarthria [Recovered/Resolved]
  - Orthostatic hypotension [Unknown]
  - Fall [Unknown]
  - Wound [Unknown]
